FAERS Safety Report 9390850 (Version 2)
Quarter: 2013Q3

REPORT INFORMATION
  Report Type: Report from Study
  Country: US (occurrence: US)
  Receive Date: 20130709
  Receipt Date: 20130823
  Transmission Date: 20140515
  Serious: Yes (Death, Hospitalization)
  Sender: FDA-Public Use
  Company Number: PHEH2013US014415

PATIENT
  Age: 55 Year
  Sex: Female
  Weight: 112 kg

DRUGS (4)
  1. AFINITOR [Suspect]
     Indication: METASTATIC NEOPLASM
  2. XANAX [Concomitant]
     Dosage: 0.5 MG, TID
  3. CREON [Concomitant]
  4. HYDROCODONE [Concomitant]

REACTIONS (3)
  - Malignant neoplasm progression [Fatal]
  - Metastatic neoplasm [Fatal]
  - Dyspnoea [Unknown]
